FAERS Safety Report 4551937-4 (Version None)
Quarter: 2005Q1

REPORT INFORMATION
  Report Type: 
  Country: None (occurrence: None)
  Receive Date: 20050110
  Receipt Date: 20041227
  Transmission Date: 20050727
  Serious: Yes (Life-Threatening, Hospitalization)
  Sender: FDA-Public Use
  Company Number: 23100213

PATIENT
  Age: 82 Year
  Sex: Male

DRUGS (12)
  1. ARGATROBAN [Suspect]
     Indication: ANTICOAGULANT THERAPY
     Dosage: 10 MCG/KG/MIN CONT IV
     Route: 042
  2. ARGATROBAN [Suspect]
     Indication: CORONARY ARTERY SURGERY
     Dosage: 10 MCG/KG/MIN CONT IV
     Route: 042
  3. ARGATROBAN [Suspect]
     Indication: ANTICOAGULANT THERAPY
     Dosage: 5 MCG/KG/MIN CONT IV
     Route: 042
  4. ARGATROBAN [Suspect]
     Indication: CORONARY ARTERY SURGERY
     Dosage: 5 MCG/KG/MIN CONT IV
     Route: 042
  5. ARGATROBAN [Suspect]
     Indication: ANTICOAGULANT THERAPY
     Dosage: 3 MCG/KG/MIN CONT IV
     Route: 042
  6. ARGATROBAN [Suspect]
     Indication: CORONARY ARTERY SURGERY
     Dosage: 3 MCG/KG/MIN CONT IV
     Route: 042
  7. EPINEPHRINE [Concomitant]
  8. NOREPINEPHRINE [Concomitant]
  9. CEFTAZIDIME [Concomitant]
  10. AMIODARONE HCL [Concomitant]
  11. RIFAMPIN [Concomitant]
  12. VANCOMYCIN [Concomitant]

REACTIONS (9)
  - ACTIVATED PARTIAL THROMBOPLASTIN TIME PROLONGED [None]
  - ATRIAL FIBRILLATION [None]
  - CARDIAC MURMUR [None]
  - ENDOCARDITIS [None]
  - LUNG INFECTION PSEUDOMONAL [None]
  - MASS [None]
  - OFF LABEL USE [None]
  - POST PROCEDURAL COMPLICATION [None]
  - STAPHYLOCOCCAL BACTERAEMIA [None]
